FAERS Safety Report 19578189 (Version 1)
Quarter: 2021Q3

REPORT INFORMATION
  Report Type: Spontaneous
  Country: CA (occurrence: CA)
  Receive Date: 20210719
  Receipt Date: 20210719
  Transmission Date: 20211014
  Serious: Yes (Other)
  Sender: FDA-Public Use
  Company Number: CA-PFIZER INC-2021861280

PATIENT
  Age: 36 Year
  Sex: Male

DRUGS (5)
  1. PREDNISONE. [Concomitant]
     Active Substance: PREDNISONE
     Dosage: 5 MG  TAPERING DOSE
  2. MEZAVANT [Concomitant]
     Active Substance: MESALAMINE
     Dosage: 1 DF
     Dates: start: 202010
  3. ELIQUIS [Concomitant]
     Active Substance: APIXABAN
  4. FOLIC ACID. [Suspect]
     Active Substance: FOLIC ACID
  5. METHOTREXATE SODIUM. [Suspect]
     Active Substance: METHOTREXATE SODIUM

REACTIONS (6)
  - Arthralgia [Not Recovered/Not Resolved]
  - Haematochezia [Unknown]
  - Fatigue [Unknown]
  - Diarrhoea [Unknown]
  - Abdominal pain [Unknown]
  - Joint stiffness [Not Recovered/Not Resolved]

NARRATIVE: CASE EVENT DATE: 202104
